FAERS Safety Report 25980186 (Version 2)
Quarter: 2025Q4

REPORT INFORMATION
  Report Type: Report from Study
  Country: CA (occurrence: CA)
  Receive Date: 20251030
  Receipt Date: 20251201
  Transmission Date: 20260118
  Serious: Yes (Other)
  Sender: ABBVIE
  Company Number: CA-ABBVIE-6524753

PATIENT
  Age: 30 Year
  Sex: Female

DRUGS (5)
  1. QULIPTA [Suspect]
     Active Substance: ATOGEPANT
     Indication: Migraine
     Route: 048
     Dates: start: 20240412
  2. ADVIL [Concomitant]
     Active Substance: IBUPROFEN
     Indication: Product used for unknown indication
     Dosage: TIME INTERVAL: AS NECESSARY: 800 MG
  3. TYLENOL [Concomitant]
     Active Substance: ACETAMINOPHEN
     Indication: Product used for unknown indication
     Dosage: TIME INTERVAL: AS NECESSARY: 1000 MG
  4. NURTEC ODT [Concomitant]
     Active Substance: RIMEGEPANT SULFATE
     Indication: Product used for unknown indication
     Dosage: TIME INTERVAL: AS NECESSARY: 75 MG
  5. SLYND [Concomitant]
     Active Substance: DROSPIRENONE
     Indication: Product used for unknown indication

REACTIONS (5)
  - Surgery [Recovered/Resolved]
  - Sleep disorder [Unknown]
  - Pain [Unknown]
  - Headache [Unknown]
  - Dehiscence [Recovered/Resolved]

NARRATIVE: CASE EVENT DATE: 20250101
